FAERS Safety Report 8400069-3 (Version None)
Quarter: 2012Q2

REPORT INFORMATION
  Report Type: 
  Country: None (occurrence: None)
  Receive Date: 20120531
  Receipt Date: 20120524
  Transmission Date: 20120825
  Serious: Yes (Other)
  Sender: FDA-Public Use
  Company Number: JP-B.I. PHARMACEUTICALS,INC./RIDGEFIELD-2012-BP-07441NB

PATIENT
  Sex: Male
  Weight: 70 kg

DRUGS (11)
  1. PLETAL [Concomitant]
     Indication: THROMBOSIS PROPHYLAXIS
     Dosage: 100 MG
     Route: 048
     Dates: start: 20110808
  2. SAWACHION [Concomitant]
     Indication: LISTLESS
     Dosage: 15 MG
     Route: 048
     Dates: start: 20110808
  3. LIVALO [Concomitant]
     Indication: HYPERLIPIDAEMIA
     Dosage: 1 MG
     Route: 048
     Dates: start: 20110808
  4. LASOPRAN OD [Concomitant]
     Indication: PROPHYLAXIS AGAINST GASTROINTESTINAL ULCER
     Dosage: 15 MG
     Route: 048
     Dates: start: 20110808
  5. PRADAXA [Suspect]
     Indication: THROMBOSIS PROPHYLAXIS
     Dosage: 300 MG
     Route: 048
     Dates: start: 20110615, end: 20120518
  6. OLMESARTAN MEDOXOMIL [Concomitant]
     Indication: HYPERTENSION
     Dosage: 20 MG
     Route: 048
     Dates: start: 20110808
  7. ALFLOSIN [Concomitant]
     Indication: HYPERTENSION
     Dosage: 4 MG
     Route: 048
     Dates: start: 20110808
  8. MAGMITT [Concomitant]
     Indication: CONSTIPATION
     Dosage: 750 MG
     Route: 048
     Dates: start: 20110808
  9. DEPAKENE [Concomitant]
     Indication: PROPHYLAXIS
     Dosage: 800 MG
     Route: 048
     Dates: start: 20110808
  10. REZALTAS [Concomitant]
     Indication: HYPERTENSION
     Route: 048
     Dates: start: 20110808
  11. EPLERENONE [Concomitant]
     Indication: HYPERTENSION
     Dosage: 100 MG
     Route: 048
     Dates: start: 20110808

REACTIONS (2)
  - DRUG EFFECT DECREASED [None]
  - CEREBRAL INFARCTION [None]
